FAERS Safety Report 5399893-3 (Version None)
Quarter: 2007Q3

REPORT INFORMATION
  Report Type: 
  Country: None (occurrence: None)
  Receive Date: 20070730
  Receipt Date: 20070720
  Transmission Date: 20080115
  Serious: Yes (Hospitalization, Other)
  Sender: FDA-Public Use
  Company Number: PHBS2007IE12297

PATIENT
  Age: 34 Year
  Sex: Female

DRUGS (3)
  1. HYDROCORTISONE [Concomitant]
     Indication: COLITIS ULCERATIVE
     Dosage: 100 MG, QID
     Route: 042
  2. CYCLOSPORINE [Suspect]
     Indication: COLITIS ULCERATIVE
     Dosage: 2 MG/KG/D
     Route: 042
  3. CYCLOSPORINE [Suspect]
     Route: 048

REACTIONS (12)
  - BONE PAIN [None]
  - COLECTOMY [None]
  - COLITIS ULCERATIVE [None]
  - DISEASE PROGRESSION [None]
  - DRUG EXPOSURE DURING PREGNANCY [None]
  - ERYTHEMA [None]
  - HYPERCOAGULATION [None]
  - NEUTROPHILIA [None]
  - OEDEMA PERIPHERAL [None]
  - OSTEOPENIA [None]
  - PAIN IN EXTREMITY [None]
  - PARAESTHESIA [None]
